FAERS Safety Report 16969407 (Version 1)
Quarter: 2019Q4

REPORT INFORMATION
  Report Type: Report from Study
  Country: DE (occurrence: DE)
  Receive Date: 20191029
  Receipt Date: 20191029
  Transmission Date: 20200122
  Serious: Yes (Other)
  Sender: FDA-Public Use
  Company Number: DE-ASTRAZENECA-2015SF19860

PATIENT
  Age: 34 Year
  Sex: Male

DRUGS (11)
  1. VALPROAT [Concomitant]
     Active Substance: VALPROATE SODIUM
     Route: 048
     Dates: start: 2014
  2. QUETIAPIN [Suspect]
     Active Substance: QUETIAPINE
     Route: 048
     Dates: start: 20150601, end: 20150605
  3. METHADONE [Concomitant]
     Active Substance: METHADONE HYDROCHLORIDE
     Route: 048
     Dates: start: 2014
  4. OXAZEPAM. [Concomitant]
     Active Substance: OXAZEPAM
     Route: 048
     Dates: start: 20150604
  5. QUETIAPIN [Suspect]
     Active Substance: QUETIAPINE
     Route: 048
     Dates: start: 20150529, end: 20150531
  6. ZUCLOPENTHIXOL [Suspect]
     Active Substance: ZUCLOPENTHIXOL
     Route: 048
     Dates: start: 20150604, end: 20150605
  7. GABAPENTIN. [Concomitant]
     Active Substance: GABAPENTIN
     Route: 048
     Dates: start: 2014
  8. OXAZEPAM. [Concomitant]
     Active Substance: OXAZEPAM
     Route: 048
     Dates: start: 20150529, end: 20150601
  9. OXAZEPAM. [Concomitant]
     Active Substance: OXAZEPAM
     Route: 048
     Dates: start: 20150602, end: 20150603
  10. MIRTAZAPIN [Concomitant]
     Active Substance: MIRTAZAPINE
     Route: 048
     Dates: start: 20150528, end: 20150605
  11. OXAZEPAM. [Concomitant]
     Active Substance: OXAZEPAM
     Route: 048
     Dates: start: 20150605

REACTIONS (1)
  - Priapism [Recovered/Resolved]

NARRATIVE: CASE EVENT DATE: 20150605
